FAERS Safety Report 11602940 (Version 2)
Quarter: 2016Q4

REPORT INFORMATION
  Report Type: Report from Study
  Country: US (occurrence: US)
  Receive Date: 20151006
  Receipt Date: 20161005
  Transmission Date: 20170206
  Serious: No
  Sender: FDA-Public Use
  Company Number: US-AMGEN-USASP2015090573

PATIENT
  Sex: Female

DRUGS (1)
  1. PROLIA [Suspect]
     Active Substance: DENOSUMAB
     Indication: PRODUCT USED FOR UNKNOWN INDICATION
     Dosage: UNK
     Route: 065
     Dates: start: 20140630

REACTIONS (4)
  - Tooth disorder [Unknown]
  - Tooth loss [Unknown]
  - Temporomandibular joint syndrome [Unknown]
  - Fear [Unknown]

NARRATIVE: CASE EVENT DATE: 2014
